FAERS Safety Report 13654247 (Version 2)
Quarter: 2017Q2

REPORT INFORMATION
  Report Type: Spontaneous
  Country: JP (occurrence: JP)
  Receive Date: 20170614
  Receipt Date: 20170622
  Transmission Date: 20170830
  Serious: Yes (Hospitalization, Other)
  Sender: FDA-Public Use
  Company Number: JP-009507513-1706JPN000868J

PATIENT
  Age: 70 Year
  Sex: Male

DRUGS (8)
  1. BROTIZOLAM [Concomitant]
     Active Substance: BROTIZOLAM
     Dosage: 0.25 MG, QD
     Route: 048
     Dates: end: 20170521
  2. ANAFRANIL [Concomitant]
     Active Substance: CLOMIPRAMINE HYDROCHLORIDE
     Dosage: 20 MG, UNK
     Route: 048
     Dates: end: 20170521
  3. ANAFRANIL [Concomitant]
     Active Substance: CLOMIPRAMINE HYDROCHLORIDE
     Dosage: 10 MG, UNK
     Route: 048
     Dates: start: 20170522, end: 20170529
  4. MEILAX [Concomitant]
     Active Substance: ETHYL LOFLAZEPATE
     Dosage: 1 MG, QD
     Route: 048
     Dates: end: 20170529
  5. SOLANAX [Concomitant]
     Active Substance: ALPRAZOLAM
     Dosage: 0.4 MG, QD
     Route: 048
     Dates: end: 20170529
  6. BROTIZOLAM [Concomitant]
     Active Substance: BROTIZOLAM
     Dosage: 0.125 MG, QD
     Route: 048
     Dates: start: 20170522, end: 20170529
  7. BELSOMRA [Suspect]
     Active Substance: SUVOREXANT
     Dosage: 20 MG, QD
     Route: 048
     Dates: start: 20160829, end: 20170519
  8. MAGMITT [Concomitant]
     Active Substance: MAGNESIUM OXIDE
     Dosage: 500 MG, TID
     Route: 048
     Dates: end: 20170529

REACTIONS (3)
  - Depressed level of consciousness [Recovering/Resolving]
  - Hallucination, auditory [Unknown]
  - Overdose [Unknown]

NARRATIVE: CASE EVENT DATE: 20160829
